FAERS Safety Report 5700179-5 (Version None)
Quarter: 2008Q2

REPORT INFORMATION
  Report Type: 
  Country: None (occurrence: None)
  Receive Date: 20080409
  Receipt Date: 20080401
  Transmission Date: 20081010
  Serious: Yes (Other)
  Sender: FDA-Public Use
  Company Number: US-JNJFOC-20071007003

PATIENT
  Sex: Male
  Weight: 104.33 kg

DRUGS (9)
  1. FENTANYL TRANSDERMAL SYSTEM [Suspect]
     Indication: BACK PAIN
     Route: 062
  2. LISINOPRIL [Concomitant]
     Indication: BLOOD PRESSURE
     Route: 048
  3. FOSAMAX [Concomitant]
     Route: 048
  4. ASPIRIN [Concomitant]
     Route: 048
  5. COREG [Concomitant]
     Route: 048
  6. COREG [Concomitant]
     Route: 048
  7. LIPITOR [Concomitant]
     Route: 048
  8. KLOR-CON [Concomitant]
     Route: 048
  9. KLOR-CON [Concomitant]
     Route: 048

REACTIONS (6)
  - APPLICATION SITE ERYTHEMA [None]
  - APPLICATION SITE PRURITUS [None]
  - EMPHYSEMA [None]
  - INCORRECT DRUG ADMINISTRATION DURATION [None]
  - WEIGHT DECREASED [None]
  - WRONG TECHNIQUE IN DRUG USAGE PROCESS [None]
